FAERS Safety Report 4573440-8 (Version None)
Quarter: 2005Q1

REPORT INFORMATION
  Report Type: 
  Country: None (occurrence: None)
  Receive Date: 20050208
  Receipt Date: 20040816
  Transmission Date: 20050727
  Serious: Yes (Hospitalization)
  Sender: FDA-Public Use
  Company Number: US-GLAXOSMITHKLINE-A0522235A

PATIENT
  Age: 43 Year
  Sex: Male

DRUGS (2)
  1. PAXIL [Suspect]
     Indication: SLEEP DISORDER
     Dosage: 20MG PER DAY
     Route: 048
     Dates: start: 20040601
  2. SONATA [Concomitant]

REACTIONS (5)
  - DRUG INEFFECTIVE [None]
  - DYSARTHRIA [None]
  - HEADACHE [None]
  - INSOMNIA [None]
  - NAUSEA [None]
